FAERS Safety Report 4314155-0 (Version None)
Quarter: 2004Q1

REPORT INFORMATION
  Report Type: 
  Country: None (occurrence: None)
  Receive Date: 20040308
  Receipt Date: 20040308
  Transmission Date: 20041129
  Serious: Yes (Other)
  Sender: FDA-Public Use
  Company Number: None

PATIENT
  Age: 9 Year
  Sex: Male
  Weight: 34 kg

DRUGS (2)
  1. OXACILLIN [Suspect]
     Indication: COCHLEA IMPLANT
     Dosage: 1 GM IV Q 6
     Route: 042
     Dates: start: 20040302, end: 20040307
  2. OXACILLIN [Suspect]
     Indication: IMPLANT SITE INFECTION
     Dosage: 1 GM IV Q 6
     Route: 042
     Dates: start: 20040302, end: 20040307

REACTIONS (1)
  - RASH GENERALISED [None]
